FAERS Safety Report 6029889-X (Version None)
Quarter: 2009Q1

REPORT INFORMATION
  Report Type: 
  Country: None (occurrence: None)
  Receive Date: 20090105
  Receipt Date: 20090105
  Transmission Date: 20090719
  Serious: Yes (Hospitalization)
  Sender: FDA-Public Use
  Company Number: None

PATIENT
  Sex: Male
  Weight: 83.2 kg

DRUGS (1)
  1. CISPLATIN [Suspect]
     Dosage: 400 MG
     Dates: end: 20081208

REACTIONS (5)
  - BACTERIA BLOOD IDENTIFIED [None]
  - BACTERIA SPUTUM IDENTIFIED [None]
  - BETA HAEMOLYTIC STREPTOCOCCAL INFECTION [None]
  - PRODUCTIVE COUGH [None]
  - PYREXIA [None]
